FAERS Safety Report 5868593-5 (Version None)
Quarter: 2008Q3

REPORT INFORMATION
  Report Type: 
  Country: None (occurrence: None)
  Receive Date: 20080903
  Receipt Date: 20080820
  Transmission Date: 20090109
  Serious: Yes (Hospitalization, Other)
  Sender: FDA-Public Use
  Company Number: US-ELI_LILLY_AND_COMPANY-US200806001562

PATIENT
  Sex: Female

DRUGS (2)
  1. FORTEO [Suspect]
     Dates: start: 20060501
  2. ACTONEL [Concomitant]
     Dosage: UNK, WEEKLY (1/W)
     Dates: start: 20030101, end: 20060101

REACTIONS (6)
  - CEREBROVASCULAR ACCIDENT [None]
  - CONVULSION [None]
  - FALL [None]
  - PULMONARY EMBOLISM [None]
  - SPINAL COMPRESSION FRACTURE [None]
  - THROMBOSIS [None]
